FAERS Safety Report 13516561 (Version 2)
Quarter: 2017Q2

REPORT INFORMATION
  Report Type: Spontaneous
  Country: FR (occurrence: FR)
  Receive Date: 20170505
  Receipt Date: 20170529
  Transmission Date: 20170830
  Serious: Yes (Hospitalization, Other)
  Sender: FDA-Public Use
  Company Number: FR-AMGEN-FRASP2017066689

PATIENT
  Age: 78 Year
  Sex: Male
  Weight: 90 kg

DRUGS (4)
  1. XGEVA [Suspect]
     Active Substance: DENOSUMAB
     Indication: PROSTATE CANCER
     Dosage: 120 MG, QMO
     Route: 065
     Dates: start: 20160727, end: 20170111
  2. DECAPEPTYL [Concomitant]
     Active Substance: TRIPTORELIN
  3. ZYTIGA [Concomitant]
     Active Substance: ABIRATERONE ACETATE
  4. SOLUPRED [Concomitant]
     Active Substance: PREDNISOLONE

REACTIONS (1)
  - Osteonecrosis of jaw [Recovering/Resolving]

NARRATIVE: CASE EVENT DATE: 20170111
